FAERS Safety Report 8209583-7 (Version None)
Quarter: 2012Q1

REPORT INFORMATION
  Report Type: 
  Country: None (occurrence: None)
  Receive Date: 20120314
  Receipt Date: 20120309
  Transmission Date: 20120608
  Serious: Yes (Disabling)
  Sender: FDA-Public Use
  Company Number: FI-PFIZER INC-2012044848

PATIENT
  Age: 47 Year
  Sex: Female

DRUGS (5)
  1. LANSOPRAZOLE [Concomitant]
     Dosage: 30 MG
  2. LYRICA [Suspect]
     Indication: NEURALGIA
     Dosage: 75 MG + 150 MG
     Dates: start: 20100101
  3. VENLAFAXINE HYDROCHLORIDE [Concomitant]
     Dosage: 75 MG + 150 MG
  4. OXYCONTIN [Concomitant]
     Dosage: 10 MG
  5. MIRTAZAPINE [Concomitant]
     Dosage: 15 MG

REACTIONS (2)
  - GASTROENTERITIS VIRAL [None]
  - DRUG INEFFECTIVE [None]
